FAERS Safety Report 16288941 (Version 1)
Quarter: 2019Q2

REPORT INFORMATION
  Report Type: Spontaneous
  Country: US (occurrence: US)
  Receive Date: 20190509
  Receipt Date: 20190509
  Transmission Date: 20190711
  Serious: Yes (Other)
  Sender: FDA-Public Use
  Company Number: PHEH2019US019242

PATIENT
  Age: 6 Month
  Sex: Male

DRUGS (2)
  1. VINCRISTINE [Suspect]
     Active Substance: VINCRISTINE
     Indication: ASTROCYTOMA
     Dosage: 1 MG/M2 PER DOSE; 2 MG MAX
     Route: 065
     Dates: start: 20190301
  2. CARBOPLATIN. [Suspect]
     Active Substance: CARBOPLATIN
     Indication: ASTROCYTOMA
     Dosage: UNK UNK, QW  (1 MG/M2 PER DOSE; 2 MG MAX)
     Route: 042
     Dates: start: 20190301

REACTIONS (2)
  - Malignant neoplasm progression [Unknown]
  - Astrocytoma [Unknown]
